FAERS Safety Report 5614601-6 (Version None)
Quarter: 2008Q1

REPORT INFORMATION
  Report Type: 
  Country: None (occurrence: None)
  Receive Date: 20080130
  Receipt Date: 20080121
  Transmission Date: 20080703
  Serious: Yes (Other)
  Sender: FDA-Public Use
  Company Number: 231290J07USA

PATIENT
  Age: 58 Year
  Sex: Female

DRUGS (7)
  1. REBIF [Suspect]
     Indication: MULTIPLE SCLEROSIS
     Dosage: 44 MCG, 3 IN 1 WEEKS, SUBCUTANEOUS
     Route: 058
     Dates: start: 20061129, end: 20071001
  2. CLONIDINE [Concomitant]
  3. LISINOPRIL [Concomitant]
  4. FUROSEMIDE [Concomitant]
  5. CALCITRIOL [Concomitant]
  6. MINOXIDIL [Concomitant]
  7. LOVASTATIN [Concomitant]

REACTIONS (4)
  - PROTEIN URINE PRESENT [None]
  - RENAL IMPAIRMENT [None]
  - URINE COLOUR ABNORMAL [None]
  - WEIGHT DECREASED [None]
